FAERS Safety Report 23591932 (Version 2)
Quarter: 2024Q1

REPORT INFORMATION
  Report Type: Spontaneous
  Country: JP (occurrence: JP)
  Receive Date: 20240304
  Receipt Date: 20240322
  Transmission Date: 20240410
  Serious: Yes (Death, Hospitalization, Other)
  Sender: FDA-Public Use
  Company Number: JP-JNJFOC-20240306278

PATIENT
  Age: 79 Year
  Sex: Female

DRUGS (15)
  1. UPTRAVI [Suspect]
     Active Substance: SELEXIPAG
     Indication: Pulmonary arterial hypertension
     Route: 048
  2. UPTRAVI [Suspect]
     Active Substance: SELEXIPAG
     Route: 048
  3. UPTRAVI [Suspect]
     Active Substance: SELEXIPAG
     Route: 048
  4. UPTRAVI [Suspect]
     Active Substance: SELEXIPAG
     Route: 048
  5. UPTRAVI [Suspect]
     Active Substance: SELEXIPAG
     Route: 048
  6. UPTRAVI [Suspect]
     Active Substance: SELEXIPAG
     Route: 048
  7. TOLVAPTAN [Concomitant]
     Active Substance: TOLVAPTAN
  8. PREDNISOLONE [Concomitant]
     Active Substance: PREDNISOLONE
  9. TACROLIMUS [Concomitant]
     Active Substance: TACROLIMUS
  10. ETANERCEPT [Concomitant]
     Active Substance: ETANERCEPT
  11. ETHAMBUTOL HYDROCHLORIDE [Concomitant]
     Active Substance: ETHAMBUTOL HYDROCHLORIDE
  12. CLARITHROMYCIN [Concomitant]
     Active Substance: CLARITHROMYCIN
  13. RIFAMPIN [Concomitant]
     Active Substance: RIFAMPIN
  14. ELDECALCITOL [Concomitant]
     Active Substance: ELDECALCITOL
  15. AZOSEMIDE [Concomitant]
     Active Substance: AZOSEMIDE

REACTIONS (10)
  - Right ventricular failure [Fatal]
  - Oedema peripheral [Unknown]
  - Face oedema [Unknown]
  - Dyspnoea [Unknown]
  - Pleural effusion [Unknown]
  - Generalised oedema [Unknown]
  - Weight increased [Unknown]
  - Renal impairment [Unknown]
  - Chest pain [Unknown]
  - Pulmonary hypertension [Unknown]
